FAERS Safety Report 8097946-2 (Version None)
Quarter: 2012Q1

REPORT INFORMATION
  Report Type: 
  Country: None (occurrence: None)
  Receive Date: 20120128
  Receipt Date: 20110721
  Transmission Date: 20120608
  Serious: No
  Sender: FDA-Public Use
  Company Number: US-ABBOTT-11P-163-0840941-00

PATIENT
  Age: 64 Year
  Sex: Female

DRUGS (5)
  1. SYNTHROID [Concomitant]
     Indication: HYPOTHYROIDISM
     Dosage: DAILY
     Route: 048
  2. HUMIRA [Suspect]
     Indication: CROHN'S DISEASE
  3. ZETIA [Concomitant]
     Indication: BLOOD CHOLESTEROL
     Dosage: DAILY
     Route: 048
  4. EXFORGE [Concomitant]
     Indication: BLOOD PRESSURE
     Dosage: 10/110MG DAILY
     Route: 048
  5. TRICOR [Concomitant]
     Indication: BLOOD TRIGLYCERIDES
     Dosage: DAILY
     Route: 048

REACTIONS (3)
  - PAIN [None]
  - BLOOD PRESSURE INCREASED [None]
  - INJECTION SITE PAIN [None]
